FAERS Safety Report 7394634-2 (Version None)
Quarter: 2011Q1

REPORT INFORMATION
  Report Type: 
  Country: None (occurrence: None)
  Receive Date: 20110331
  Receipt Date: 20110331
  Transmission Date: 20110831
  Serious: Yes (Hospitalization)
  Sender: FDA-Public Use
  Company Number: None

PATIENT
  Sex: Female
  Weight: 81.4 kg

DRUGS (7)
  1. PERCOCET [Concomitant]
  2. NITROGLYCERIN [Concomitant]
  3. CETUXIMAB (ERBITUX) [Suspect]
     Dosage: 772 MG
  4. LISINOPRIL [Concomitant]
  5. CRESTOR [Concomitant]
  6. CISPLATIN [Suspect]
     Dosage: 144 MG
  7. FLUOROURACIL [Suspect]
     Dosage: 1930 MG

REACTIONS (2)
  - PYREXIA [None]
  - NEUTROPENIA [None]
